FAERS Safety Report 10233012 (Version 7)
Quarter: 2014Q4

REPORT INFORMATION
  Report Type: Spontaneous
  Country: US (occurrence: US)
  Receive Date: 20140612
  Receipt Date: 20141003
  Transmission Date: 20150528
  Serious: No
  Sender: FDA-Public Use
  Company Number: US-PFIZER INC-2014157664

PATIENT
  Age: 48 Year
  Sex: Female
  Weight: 49.89 kg

DRUGS (5)
  1. OMEPRAZOLE. [Concomitant]
     Active Substance: OMEPRAZOLE
     Indication: GASTROOESOPHAGEAL REFLUX DISEASE
     Dosage: 20 MG, 2X/DAY
  2. ONDANSETRON [Concomitant]
     Active Substance: ONDANSETRON
     Indication: NAUSEA
     Dosage: 8 MG, UNK
  3. SPORANOX [Suspect]
     Active Substance: ITRACONAZOLE\SODIUM CHLORIDE
     Indication: PNEUMONIA FUNGAL
     Dosage: 200 MG, DAILY
     Route: 048
     Dates: start: 20140715, end: 20140828
  4. VFEND [Suspect]
     Active Substance: VORICONAZOLE
     Indication: PNEUMONIA FUNGAL
     Dosage: 200 MG, 2X/DAY
     Dates: start: 20140619, end: 20140629
  5. VORICONAZOLE. [Suspect]
     Active Substance: VORICONAZOLE
     Indication: PNEUMONIA FUNGAL
     Dosage: 200 MG, 2X/DAY
     Dates: start: 20140604, end: 20140618

REACTIONS (23)
  - Sunburn [Unknown]
  - Hyperhidrosis [Unknown]
  - Pruritus [Not Recovered/Not Resolved]
  - Night sweats [Unknown]
  - Diarrhoea [Recovered/Resolved]
  - Tachycardia [Recovering/Resolving]
  - Palpitations [Recovering/Resolving]
  - Chills [Not Recovered/Not Resolved]
  - Feeling abnormal [Unknown]
  - Nausea [Not Recovered/Not Resolved]
  - Urticaria [Not Recovered/Not Resolved]
  - Lip exfoliation [Unknown]
  - Drug hypersensitivity [Unknown]
  - Vomiting [Recovered/Resolved]
  - Halo vision [Unknown]
  - Photosensitivity reaction [Unknown]
  - Pyrexia [Not Recovered/Not Resolved]
  - Obsessive-compulsive disorder [Unknown]
  - Cough [Unknown]
  - Visual impairment [Unknown]
  - Blister [Recovered/Resolved]
  - Burning sensation [Not Recovered/Not Resolved]
  - Bone pain [Recovered/Resolved]

NARRATIVE: CASE EVENT DATE: 201406
